FAERS Safety Report 15996463 (Version 1)
Quarter: 2019Q1

REPORT INFORMATION
  Report Type: Spontaneous
  Country: US (occurrence: US)
  Receive Date: 20190222
  Receipt Date: 20190222
  Transmission Date: 20190418
  Serious: Yes (Other)
  Sender: FDA-Public Use
  Company Number: US-PFIZER INC-2019084335

PATIENT
  Sex: Male

DRUGS (8)
  1. PRILOSEC [Suspect]
     Active Substance: OMEPRAZOLE MAGNESIUM
  2. NEXIUM [Suspect]
     Active Substance: ESOMEPRAZOLE MAGNESIUM
  3. PREVACID 24 HR [Suspect]
     Active Substance: LANSOPRAZOLE
  4. PROTONIX [Suspect]
     Active Substance: PANTOPRAZOLE SODIUM
  5. PREVACID [Suspect]
     Active Substance: LANSOPRAZOLE
  6. PRILOSEC OTC [Suspect]
     Active Substance: OMEPRAZOLE MAGNESIUM
  7. DEXILANT [Suspect]
     Active Substance: DEXLANSOPRAZOLE
  8. NEXIUM 24HR [Suspect]
     Active Substance: ESOMEPRAZOLE MAGNESIUM

REACTIONS (2)
  - Renal failure [Unknown]
  - Renal injury [Unknown]
